FAERS Safety Report 7609695-2 (Version None)
Quarter: 2011Q3

REPORT INFORMATION
  Report Type: 
  Country: None (occurrence: None)
  Receive Date: 20110714
  Receipt Date: 20110701
  Transmission Date: 20111222
  Serious: Yes (Hospitalization)
  Sender: FDA-Public Use
  Company Number: US-JNJFOC-20091205403

PATIENT
  Sex: Male
  Weight: 48.5 kg

DRUGS (5)
  1. MESALAMINE [Concomitant]
  2. COLACE [Concomitant]
  3. INFLIXIMAB [Suspect]
     Indication: INFLAMMATORY BOWEL DISEASE
     Dosage: DATE STOPPED REPORTED AS ^26-MAY-2008^
     Route: 042
     Dates: start: 20081022
  4. INFLIXIMAB [Suspect]
     Route: 042
     Dates: start: 20040204, end: 20060308
  5. ANTIBIOTICS [Concomitant]
     Indication: INFLAMMATORY BOWEL DISEASE

REACTIONS (2)
  - BACTERIAL INFECTION [None]
  - PERIRECTAL ABSCESS [None]
